FAERS Safety Report 7532727-7 (Version None)
Quarter: 2011Q2

REPORT INFORMATION
  Report Type: 
  Country: None (occurrence: None)
  Receive Date: 20110608
  Receipt Date: 20110531
  Transmission Date: 20111010
  Serious: Yes (Other)
  Sender: FDA-Public Use
  Company Number: A0929590A

PATIENT
  Sex: Female
  Weight: 52.3 kg

DRUGS (1)
  1. ADVAIR DISKUS 100/50 [Suspect]
     Route: 055

REACTIONS (9)
  - THINKING ABNORMAL [None]
  - OROPHARYNGEAL PAIN [None]
  - LUNG DISORDER [None]
  - HAEMOPTYSIS [None]
  - GENERAL PHYSICAL HEALTH DETERIORATION [None]
  - DYSPHONIA [None]
  - HAEMORRHAGE [None]
  - INCORRECT DOSE ADMINISTERED [None]
  - PRODUCTIVE COUGH [None]
